FAERS Safety Report 17729488 (Version 1)
Quarter: 2020Q2

REPORT INFORMATION
  Report Type: Spontaneous
  Country: US (occurrence: US)
  Receive Date: 20200430
  Receipt Date: 20200430
  Transmission Date: 20200714
  Serious: Yes (Hospitalization)
  Sender: FDA-Public Use
  Company Number: None

PATIENT
  Sex: Male

DRUGS (1)
  1. CYCLOPHOSPHAMIDE. [Suspect]
     Active Substance: CYCLOPHOSPHAMIDE
     Indication: BASAL CELL CARCINOMA
     Dosage: ?          OTHER FREQUENCY:DAY 1, 8, AND 15;?
     Route: 048
     Dates: start: 20200220

REACTIONS (2)
  - Cardiac disorder [None]
  - Fall [None]
